FAERS Safety Report 8110304-7 (Version None)
Quarter: 2012Q1

REPORT INFORMATION
  Report Type: 
  Country: None (occurrence: None)
  Receive Date: 20120202
  Receipt Date: 20120127
  Transmission Date: 20120608
  Serious: Yes (Hospitalization)
  Sender: FDA-Public Use
  Company Number: BR-ROCHE-1035107

PATIENT
  Sex: Male
  Weight: 65 kg

DRUGS (6)
  1. MABTHERA [Suspect]
     Indication: PRODUCT USED FOR UNKNOWN INDICATION
     Route: 042
     Dates: start: 20110824, end: 20110909
  2. DIPYRONE INJ [Concomitant]
  3. CRESTOR [Concomitant]
  4. PREDNISONE TAB [Concomitant]
  5. PANTOPRAZOLE [Concomitant]
  6. PLAVIX [Concomitant]

REACTIONS (4)
  - WEIGHT DECREASED [None]
  - MYOCARDIAL INFARCTION [None]
  - DYSPNOEA [None]
  - FATIGUE [None]
